FAERS Safety Report 7245184-5 (Version None)
Quarter: 2011Q1

REPORT INFORMATION
  Report Type: 
  Country: None (occurrence: None)
  Receive Date: 20110126
  Receipt Date: 20110113
  Transmission Date: 20110831
  Serious: Yes (Other)
  Sender: FDA-Public Use
  Company Number: PHHY2010US65840

PATIENT
  Sex: Female

DRUGS (7)
  1. CYMBALTA [Concomitant]
     Dosage: 60 MG, QD
  2. LOTREL [Concomitant]
     Dosage: 1040 (UNIT UNSPECIFIED), QD
  3. EXTAVIA [Suspect]
     Dosage: 1 ML, QOD
     Route: 058
  4. EXTAVIA [Suspect]
     Indication: MULTIPLE SCLEROSIS
     Dosage: 0.25 MG, QOD
     Route: 058
     Dates: start: 20100925
  5. EXTAVIA [Suspect]
     Dosage: 0.3 MG VIAL, 125 MG, QOD
  6. GABAPENTIN [Concomitant]
     Indication: PARAESTHESIA
     Dosage: 2 DF, BID
  7. BACLOFEN [Concomitant]
     Dosage: 10 MG, TID

REACTIONS (29)
  - FATIGUE [None]
  - INJECTION SITE PAIN [None]
  - ASTHENIA [None]
  - HEADACHE [None]
  - NECK PAIN [None]
  - DECREASED APPETITE [None]
  - INJECTION SITE ERYTHEMA [None]
  - PARAESTHESIA [None]
  - FRUSTRATION [None]
  - MUSCLE SPASMS [None]
  - INFLUENZA [None]
  - INJECTION SITE HAEMATOMA [None]
  - OPEN WOUND [None]
  - DYSKINESIA [None]
  - NAUSEA [None]
  - MYALGIA [None]
  - DYSPNOEA [None]
  - STARING [None]
  - DEPRESSION [None]
  - HYPERHIDROSIS [None]
  - INJECTION SITE REACTION [None]
  - BACK PAIN [None]
  - COUGH [None]
  - ABDOMINAL PAIN UPPER [None]
  - MUSCLE TWITCHING [None]
  - CONVULSION [None]
  - HYPERPHAGIA [None]
  - PYREXIA [None]
  - INJECTION SITE MASS [None]
